FAERS Safety Report 10515892 (Version 7)
Quarter: 2015Q1

REPORT INFORMATION
  Report Type: Spontaneous
  Country: US (occurrence: US)
  Receive Date: 20141014
  Receipt Date: 20150303
  Transmission Date: 20150720
  Serious: No
  Sender: FDA-Public Use
  Company Number: US-PFIZER INC-2014279350

PATIENT
  Age: 85 Year
  Sex: Female

DRUGS (11)
  1. SUTENT [Suspect]
     Active Substance: SUNITINIB MALATE
     Indication: RENAL CANCER METASTATIC
     Dosage: 50 MG, DAILY (FIRST 28 DAYS)
     Dates: start: 20140903, end: 201410
  2. COENZYME Q10 [Concomitant]
     Active Substance: UBIDECARENONE
     Dosage: UNK
  3. SUTENT [Suspect]
     Active Substance: SUNITINIB MALATE
     Dosage: 37.5 MG, DAILY
     Dates: start: 201410, end: 20141103
  4. MELATONIN [Concomitant]
     Active Substance: MELATONIN
     Dosage: UNK
  5. OMEGA 3 [Concomitant]
     Active Substance: OMEGA-3 FATTY ACIDS
     Dosage: UNK
  6. TYLENOL 8 HR [Concomitant]
     Active Substance: ACETAMINOPHEN
     Dosage: UNK
  7. LEVOTHYROXINE SODIUM. [Concomitant]
     Active Substance: LEVOTHYROXINE SODIUM
     Dosage: UNK
  8. VITAMIN D3 [Concomitant]
     Active Substance: CHOLECALCIFEROL
     Dosage: UNK
  9. LISINOPRIL. [Concomitant]
     Active Substance: LISINOPRIL
     Dosage: UNK
  10. METFORMIN HCL ER [Concomitant]
     Dosage: UNK
  11. ONDANSETRON [Concomitant]
     Active Substance: ONDANSETRON
     Dosage: 10 MG, 2X/DAY

REACTIONS (10)
  - Vomiting [Unknown]
  - Diarrhoea [Recovered/Resolved]
  - Epistaxis [Unknown]
  - Nasal dryness [Not Recovered/Not Resolved]
  - Alopecia [Not Recovered/Not Resolved]
  - Dehydration [Recovered/Resolved]
  - Pain in extremity [Unknown]
  - Dry skin [Not Recovered/Not Resolved]
  - Nausea [Recovered/Resolved]
  - Skin fissures [Unknown]

NARRATIVE: CASE EVENT DATE: 2014
